FAERS Safety Report 8624266-7 (Version None)
Quarter: 2012Q3

REPORT INFORMATION
  Report Type: 
  Country: None (occurrence: None)
  Receive Date: 20120827
  Receipt Date: 20120815
  Transmission Date: 20120928
  Serious: Yes (Hospitalization, Other)
  Sender: FDA-Public Use
  Company Number: US-ELI_LILLY_AND_COMPANY-US201207001714

PATIENT
  Sex: Female
  Weight: 108.84 kg

DRUGS (6)
  1. GLIPIZIDE [Concomitant]
     Indication: TYPE 2 DIABETES MELLITUS
     Dosage: 2 DF, QD
     Route: 048
  2. BYETTA [Suspect]
     Indication: TYPE 2 DIABETES MELLITUS
     Dosage: 5 UG, BID
     Route: 058
     Dates: start: 20110701, end: 20110801
  3. ANTIHYPERTENSIVES [Concomitant]
     Indication: BLOOD PRESSURE INCREASED
     Dosage: UNK
     Route: 048
  4. GLIPIZIDE [Concomitant]
     Dosage: 1 DF, UNK
     Route: 048
  5. BYETTA [Suspect]
     Dosage: 10 UG, BID
     Route: 058
     Dates: start: 20110801
  6. METFORMIN HCL [Concomitant]
     Indication: TYPE 2 DIABETES MELLITUS
     Dosage: 1000 MG, BID
     Route: 048

REACTIONS (9)
  - WEIGHT FLUCTUATION [None]
  - UNDERDOSE [None]
  - ANXIETY [None]
  - CAROTID ARTERY OCCLUSION [None]
  - FEMORAL ARTERIAL STENOSIS [None]
  - POOR PERIPHERAL CIRCULATION [None]
  - NAUSEA [None]
  - BLOOD GLUCOSE INCREASED [None]
  - BLOOD GLUCOSE DECREASED [None]
